FAERS Safety Report 12630885 (Version 2)
Quarter: 2016Q3

REPORT INFORMATION
  Report Type: Spontaneous
  Country: US (occurrence: US)
  Receive Date: 20160808
  Receipt Date: 20160930
  Transmission Date: 20161109
  Serious: No
  Sender: FDA-Public Use
  Company Number: US-PFIZER INC-2016375150

PATIENT
  Age: 58 Year
  Sex: Female

DRUGS (29)
  1. DICLOFENAC [Concomitant]
     Active Substance: DICLOFENAC
     Indication: ARTHRALGIA
     Dosage: UNK UNK, 2X/DAY (1 (ONE) CREAM, CREAM APPLY TWICE DAILY AS DIRECTED)
     Dates: start: 20141008
  2. RED YEAST RICE [Concomitant]
     Active Substance: DIETARY SUPPLEMENT
     Dosage: 600 MG, 2X/DAY (600MG CAPSULE, 2 ORAL DAILY)
     Route: 048
  3. TRICOR [Concomitant]
     Active Substance: FENOFIBRATE
     Dosage: 134 MG, UNK
     Route: 048
     Dates: start: 20060421, end: 20061027
  4. VIACTIV [Concomitant]
     Active Substance: CALCIUM\VITAMIN D\VITAMIN K5
     Dosage: 1 DF, AS NEEDED (CALCIUM CARBONATE: 500 MG, COLECALCIFEROL:500, PHYTOMENADIONE:40 MG)
  5. ZOLPIDEM TARTRATE. [Concomitant]
     Active Substance: ZOLPIDEM TARTRATE
     Indication: INSOMNIA
     Dosage: 10 MG, 1X/DAY (AT BEDTIME)
     Dates: start: 20160630
  6. ESTRADIOL. [Concomitant]
     Active Substance: ESTRADIOL
     Dosage: 1 MG, DAILY
  7. METHOTREXATE. [Concomitant]
     Active Substance: METHOTREXATE
     Indication: RHEUMATOID ARTHRITIS
     Dosage: UNK UNK, WEEKLY (6 TABLET WEEKLY)
     Dates: start: 20160630
  8. ORENCIA [Suspect]
     Active Substance: ABATACEPT
     Dosage: 250 MG, UNK
     Dates: start: 20160710
  9. FISH OIL [Concomitant]
     Active Substance: FISH OIL
     Dosage: 1000 MG, DAILY
     Route: 048
  10. ASPIRIN E.C [Concomitant]
     Active Substance: ASPIRIN
     Dosage: 81 MG, DAILY
     Route: 048
  11. NIACIN. [Concomitant]
     Active Substance: NIACIN
     Dosage: 500 MG, DAILY
     Route: 048
  12. SALAGEN [Concomitant]
     Active Substance: PILOCARPINE HYDROCHLORIDE
     Indication: SJOGREN^S SYNDROME
     Dosage: 5 MG, 3X/DAY
     Dates: start: 20160218
  13. VENLAFAXINE HCL [Concomitant]
     Active Substance: VENLAFAXINE HYDROCHLORIDE
     Dosage: 37.5 MG, DAILY
     Route: 048
  14. FOLIC ACID. [Concomitant]
     Active Substance: FOLIC ACID
     Indication: RHEUMATOID ARTHRITIS
     Dosage: 2 MG, DAILY (2 (TWO) TABLET DAILY)
     Dates: start: 20120814
  15. CYCLOBENZAPRINE HCL [Concomitant]
     Active Substance: CYCLOBENZAPRINE HYDROCHLORIDE
     Indication: RHEUMATOID ARTHRITIS
     Dosage: 10 MG, 1X/DAY (1 (ONE) TABLET AT BEDTIME)
     Dates: start: 20160913
  16. PREDNISONE. [Concomitant]
     Active Substance: PREDNISONE
     Indication: RHEUMATOID ARTHRITIS
     Dosage: 5 MG, AS NEEDED (1-2 TABLET IN THE AM AS DIRECTED/ PRN ARTHRITIS FLARE)
     Dates: start: 20160822
  17. ZOLOFT [Concomitant]
     Active Substance: SERTRALINE HYDROCHLORIDE
     Dosage: 50 MG, UNK
     Route: 048
  18. ORENCIA [Suspect]
     Active Substance: ABATACEPT
     Dosage: 750 MG, ONCE MONTHLY
     Route: 042
  19. XELJANZ [Suspect]
     Active Substance: TOFACITINIB CITRATE
     Indication: RHEUMATOID ARTHRITIS
     Dosage: 5 MG
     Route: 048
     Dates: start: 20160630, end: 20160801
  20. ESTRADIOL. [Concomitant]
     Active Substance: ESTRADIOL
     Dosage: 0.05 MG, UNK (1 TRANSDERMAL EVERY 7 DAYS)
     Route: 062
  21. LAXATIVE STOOL SOFTENER WITH SENNA [Concomitant]
     Dosage: UNK UNK, AS NEEDED (STOOL SOFTENER: 30 MG; LAXATIVE: 100 MG)
     Route: 048
  22. TESTOSTERONE. [Concomitant]
     Active Substance: TESTOSTERONE
     Dosage: 1 DF, AS NEEDED (1 DAILY, AS NEEDED)
  23. VITAMIN B12 [Concomitant]
     Active Substance: CYANOCOBALAMIN
     Dosage: 100 UG, DAILY
     Route: 048
  24. LIDODERM [Concomitant]
     Active Substance: LIDOCAINE
     Indication: RHEUMATOID ARTHRITIS
     Dosage: UNK UNK, AS NEEDED (3 PATCH AS NEEDED)
     Dates: start: 20140625
  25. ULTRAM [Concomitant]
     Active Substance: TRAMADOL HYDROCHLORIDE
     Indication: RHEUMATOID ARTHRITIS
     Dosage: 50 MG, 3X/DAY (1 (ONE) TABLET AM, 2 TABS IN PM)
     Dates: start: 20160630
  26. NEXIUM [Concomitant]
     Active Substance: ESOMEPRAZOLE MAGNESIUM
     Dosage: 40 MG, 2X/DAY
     Route: 048
     Dates: start: 20040218
  27. BIOTIN [Concomitant]
     Active Substance: BIOTIN
     Dosage: 1 DF, DAILY (5000 (1 ORAL DAILY) SPECIFIC DOSE UNKNOWN)
     Route: 048
  28. PROZAC [Concomitant]
     Active Substance: FLUOXETINE HYDROCHLORIDE
     Dosage: 10 MG, DAILY
     Route: 048
  29. REMIFEMIN [Concomitant]
     Dosage: 20 MG, 2X/DAY
     Route: 048

REACTIONS (2)
  - Headache [Recovered/Resolved]
  - Drug hypersensitivity [Unknown]

NARRATIVE: CASE EVENT DATE: 20160714
